FAERS Safety Report 5923886-8 (Version None)
Quarter: 2008Q4

REPORT INFORMATION
  Report Type: 
  Country: None (occurrence: None)
  Receive Date: 20081020
  Receipt Date: 20081010
  Transmission Date: 20090506
  Serious: Yes (Hospitalization)
  Sender: FDA-Public Use
  Company Number: US-MERCK-0810USA02341

PATIENT
  Age: 15 Year
  Sex: Female

DRUGS (6)
  1. DECADRON [Suspect]
     Indication: T-CELL TYPE ACUTE LEUKAEMIA
     Route: 048
  2. METHOTREXATE [Concomitant]
     Route: 065
  3. MERCAPTOPURINE [Concomitant]
     Route: 065
  4. DAPSONE [Concomitant]
     Route: 065
  5. FILGRASTIM [Concomitant]
     Route: 065
  6. GLOBULIN, IMMUNE [Concomitant]
     Route: 042

REACTIONS (1)
  - CHORIOMENINGITIS LYMPHOCYTIC [None]
